FAERS Safety Report 20886668 (Version 1)
Quarter: 2022Q2

REPORT INFORMATION
  Report Type: Spontaneous
  Country: DK (occurrence: DK)
  Receive Date: 20220527
  Receipt Date: 20220527
  Transmission Date: 20220720
  Serious: Yes (Life-Threatening, Hospitalization, Disabling, Other)
  Sender: FDA-Public Use
  Company Number: DK-BAXTER-2022BAX010485

PATIENT
  Age: 38 Year
  Sex: Male

DRUGS (6)
  1. CYCLOPHOSPHAMIDE [Suspect]
     Active Substance: CYCLOPHOSPHAMIDE
     Indication: Bone marrow conditioning regimen
     Route: 065
  2. DEXAMETHASONE [Concomitant]
     Active Substance: DEXAMETHASONE
     Indication: Precursor T-lymphoblastic lymphoma/leukaemia
     Dosage: 40 MG, D1?4 EVERY 3 WEEKS, 4 COURSES
     Route: 065
  3. NELARABINE [Concomitant]
     Active Substance: NELARABINE
     Indication: Precursor T-lymphoblastic lymphoma/leukaemia
     Dosage: 1500 MG/M2, D1, 3, 5 EVERY 3 WEEKS, 4 COURSES
     Route: 065
  4. PEGASPARGASE [Concomitant]
     Active Substance: PEGASPARGASE
     Indication: Precursor T-lymphoblastic lymphoma/leukaemia
     Dosage: 1000 MG/M2 I.M., D1 EVERY 3 WEEKS, 4 COURSES
     Route: 065
  5. DARATUMUMAB [Concomitant]
     Active Substance: DARATUMUMAB
     Indication: Precursor T-lymphoblastic lymphoma/leukaemia
     Dosage: 16 MG/KG I.V., D1 WEEKLY FOR 13 WEEKS (TILL START OF CONDITIONING)
     Route: 065
  6. PEGFILGRASTIM [Concomitant]
     Active Substance: PEGFILGRASTIM
     Dosage: 6 MG S.C., D7 EVERY 3 WEEKS, 4 COURSES
     Route: 065

REACTIONS (6)
  - Nervous system disorder [Not Recovered/Not Resolved]
  - Ataxia [Not Recovered/Not Resolved]
  - Sensory loss [Not Recovered/Not Resolved]
  - Monoparesis [Not Recovered/Not Resolved]
  - Neurological symptom [Not Recovered/Not Resolved]
  - Disease progression [Not Recovered/Not Resolved]
